FAERS Safety Report 6067789-X (Version None)
Quarter: 2009Q1

REPORT INFORMATION
  Report Type: 
  Country: None (occurrence: None)
  Receive Date: 20090203
  Receipt Date: 20090123
  Transmission Date: 20090719
  Serious: Yes (Hospitalization)
  Sender: FDA-Public Use
  Company Number: 2009PL000035

PATIENT
  Age: 30 Year
  Sex: Male
  Weight: 132.4503 kg

DRUGS (4)
  1. IMURAN [Suspect]
     Indication: CROHN'S DISEASE
     Dosage: 2.5 MG/KG; QD
     Dates: start: 20050804
  2. AZATHIOPRINE [Suspect]
     Indication: CROHN'S DISEASE
     Dosage: 2.5 MG/KG;QD
     Dates: start: 20050804
  3. INFLIXIMAB, RECOMBINANT [Suspect]
     Indication: CROHN'S DISEASE
     Dosage: 5MG/KG/QD; IV
     Route: 042
     Dates: start: 20050218
  4. MULTI-VITAMIN [Concomitant]

REACTIONS (3)
  - GRANULOCYTE COUNT INCREASED [None]
  - SMALL INTESTINAL OBSTRUCTION [None]
  - VASCULAR CALCIFICATION [None]
